FAERS Safety Report 6639688-3 (Version None)
Quarter: 2010Q1

REPORT INFORMATION
  Report Type: 
  Country: None (occurrence: None)
  Receive Date: 20100318
  Receipt Date: 20100316
  Transmission Date: 20100710
  Serious: Yes (Other)
  Sender: FDA-Public Use
  Company Number: US-RB-004873-10

PATIENT
  Sex: Female

DRUGS (5)
  1. MUCINEX DM [Suspect]
     Indication: RESPIRATORY TRACT CONGESTION
     Route: 048
     Dates: start: 20100101
  2. MUCINEX DM [Suspect]
     Indication: COUGH
     Route: 048
     Dates: start: 20100101
  3. ZYRTEC [Suspect]
     Indication: RESPIRATORY TRACT CONGESTION
  4. ZYRTEC [Suspect]
     Indication: COUGH
  5. PROGEST [Concomitant]
     Indication: MENOPAUSAL SYMPTOMS

REACTIONS (3)
  - BLOOD PRESSURE INCREASED [None]
  - COUGH [None]
  - HEADACHE [None]
